FAERS Safety Report 15240788 (Version 1)
Quarter: 2018Q3

REPORT INFORMATION
  Report Type: Spontaneous
  Country: US (occurrence: US)
  Receive Date: 20180710
  Receipt Date: 20180710
  Transmission Date: 20181010
  Serious: Yes (Hospitalization)
  Sender: FDA-Public Use
  Company Number: None

PATIENT
  Age: 54 Year
  Sex: Female
  Weight: 90.2 kg

DRUGS (1)
  1. FEMARA [Suspect]
     Active Substance: LETROZOLE
     Dates: end: 20180326

REACTIONS (6)
  - Palpitations [None]
  - Ventricular tachycardia [None]
  - Hypokalaemia [None]
  - Small intestinal obstruction [None]
  - Vomiting [None]
  - Blood lactic acid increased [None]

NARRATIVE: CASE EVENT DATE: 20180326
